FAERS Safety Report 21524996 (Version 2)
Quarter: 2022Q4

REPORT INFORMATION
  Report Type: Spontaneous
  Country: FR (occurrence: FR)
  Receive Date: 20221030
  Receipt Date: 20221118
  Transmission Date: 20230113
  Serious: Yes (Death)
  Sender: FDA-Public Use
  Company Number: None

PATIENT
  Age: 39 Year
  Sex: Male

DRUGS (1)
  1. FENTANYL [Suspect]
     Active Substance: FENTANYL
     Indication: Product used for unknown indication
     Dosage: DURATION : 1 DAY
     Route: 065
     Dates: start: 20190926, end: 20190926

REACTIONS (3)
  - Asphyxia [Fatal]
  - Self-medication [Fatal]
  - Drug abuse [Fatal]

NARRATIVE: CASE EVENT DATE: 20190926
